FAERS Safety Report 6660426-2 (Version None)
Quarter: 2010Q1

REPORT INFORMATION
  Report Type: 
  Country: None (occurrence: None)
  Receive Date: 20100331
  Receipt Date: 20100318
  Transmission Date: 20100710
  Serious: Yes (Death)
  Sender: FDA-Public Use
  Company Number: US-JNJFOC-20100306593

PATIENT
  Age: 52 Year
  Sex: Male

DRUGS (7)
  1. TRAMADOL HCL [Suspect]
     Indication: DRUG USE FOR UNKNOWN INDICATION
  2. CYCLOBENZAPRINE [Suspect]
     Indication: DRUG USE FOR UNKNOWN INDICATION
  3. ACETAMINOPHEN [Suspect]
  4. ACETAMINOPHEN [Suspect]
     Indication: DRUG USE FOR UNKNOWN INDICATION
  5. CODEINE SULFATE [Suspect]
     Indication: DRUG USE FOR UNKNOWN INDICATION
  6. HYDROCODONE [Suspect]
     Indication: DRUG USE FOR UNKNOWN INDICATION
  7. SALICYLATES NOS [Concomitant]

REACTIONS (1)
  - DRUG TOXICITY [None]
